FAERS Safety Report 6712516-3 (Version None)
Quarter: 2010Q2

REPORT INFORMATION
  Report Type: 
  Country: None (occurrence: None)
  Receive Date: 20100505
  Receipt Date: 20100505
  Transmission Date: 20101027
  Serious: Yes (Other)
  Sender: FDA-Public Use
  Company Number: None

PATIENT
  Age: 52 Year
  Sex: Female
  Weight: 105.2345 kg

DRUGS (2)
  1. HYOSCYAMINE SULF [Suspect]
     Indication: ABDOMINAL PAIN
     Dosage: 0.125 MG 1 TAB EVERY 12 HRS
     Dates: start: 20091004, end: 20091206
  2. HYOSCYAMINE ER [Suspect]
     Indication: ABDOMINAL PAIN
     Dosage: 0.315MG 1 TAB EVERY 12 HRS
     Dates: start: 20100408, end: 20100412

REACTIONS (3)
  - DYSPHEMIA [None]
  - MUSCLE TWITCHING [None]
  - TIC [None]
